FAERS Safety Report 5057145-5 (Version None)
Quarter: 2006Q2

REPORT INFORMATION
  Report Type: 
  Country: None (occurrence: None)
  Receive Date: 20060622
  Receipt Date: 20060322
  Transmission Date: 20061013
  Serious: Yes (Hospitalization, Other)
  Sender: FDA-Public Use
  Company Number: US-JNJFOC-20060306129

PATIENT
  Sex: Female

DRUGS (21)
  1. DURAGESIC-100 [Suspect]
     Indication: CANCER PAIN
     Dosage: TRANSDERMAL
     Route: 062
  2. FENTANYL [Suspect]
     Indication: CANCER PAIN
     Dosage: SEE IMAGE
     Route: 062
     Dates: start: 20050101, end: 20060101
  3. FENTANYL [Suspect]
     Indication: CANCER PAIN
     Dosage: SEE IMAGE
     Route: 062
     Dates: start: 20060101
  4. BENICAR (OLMESARTAN) TABLET [Concomitant]
  5. HYDROCHLOROTHIAZIDE [Concomitant]
  6. SPIRONOLACTONE (SPIRONOLACTONE) TABLET [Concomitant]
  7. TRAZADONE (TRAZODONE) TABLET [Concomitant]
  8. CYMBALTA (ANTIDEPRESSANTS) CAPSULE [Concomitant]
  9. METHYLPHENIDATE (METHYLPHENIDATE) TABLET [Concomitant]
  10. FEMORA (LETROZOLE) TABLET [Concomitant]
  11. IBUPROFEN [Concomitant]
  12. VITAMIN E [Concomitant]
  13. CALCIUM WITH VITAMIN D (CALCIUM WITH VITAMIN D) [Concomitant]
  14. GREEN TEA (PLANT ALKALOIDS AND OTHER NATURAL RODUCTS) CAPSULE [Concomitant]
  15. OMEGA 3 (FISH OIL) CAPSULE [Concomitant]
  16. SELENIUM (SELENIUM) [Concomitant]
  17. CQ10 (UBIDECARENONE) [Concomitant]
  18. GINKO (GINKO BILOBA) TABLET [Concomitant]
  19. LAKTOFERRIN (IRON SUCCINYL-PROTEIN COMPLEX) [Concomitant]
  20. GLUCOSAMINE (GLUCOSAMINE) [Concomitant]
  21. CHONDROITIN (CHONDROITIN SULFATE) [Concomitant]

REACTIONS (10)
  - ASTHENIA [None]
  - BLOOD CREATININE INCREASED [None]
  - BLOOD POTASSIUM INCREASED [None]
  - CANCER PAIN [None]
  - CONSTIPATION [None]
  - DEHYDRATION [None]
  - FOOT FRACTURE [None]
  - NAUSEA [None]
  - SYNCOPE [None]
  - WEIGHT DECREASED [None]
